FAERS Safety Report 8787094 (Version 1)
Quarter: 2012Q4

REPORT INFORMATION
  Report Type: 
  Country: ES (occurrence: ES)
  Receive Date: 20120914
  Receipt Date: 20120914
  Transmission Date: 20130627
  Serious: Yes (Death, Hospitalization, Other)
  Sender: FDA-Public Use
  Company Number: ES-BAYER-2012-083818

PATIENT
  Age: 60 Year
  Sex: Male
  Weight: 79.82 kg

DRUGS (4)
  1. NEXAVAR [Suspect]
     Indication: LARGE CELL LUNG CANCER METASTATIC
     Dosage: 200 mg, QID
     Route: 048
     Dates: start: 201207, end: 201208
  2. NEXAVAR [Suspect]
     Indication: LARGE CELL LUNG CANCER METASTATIC
     Dosage: UNK
     Dates: start: 201206
  3. FUROSEMIDE [Concomitant]
     Indication: HYPERTENSION
     Dosage: UNK
  4. HYDROCHLOROTHIAZIDE [Concomitant]
     Indication: HYPERTENSION
     Dosage: UNK

REACTIONS (7)
  - Stomatitis [Not Recovered/Not Resolved]
  - Oropharyngeal candidiasis [Not Recovered/Not Resolved]
  - Oesophageal candidiasis [Not Recovered/Not Resolved]
  - Oral pain [Not Recovered/Not Resolved]
  - Dysphagia [Not Recovered/Not Resolved]
  - Stomatitis [Recovered/Resolved]
  - Respiratory disorder [Fatal]
